FAERS Safety Report 7130439-5 (Version None)
Quarter: 2010Q4

REPORT INFORMATION
  Report Type: 
  Country: None (occurrence: None)
  Receive Date: 20101201
  Receipt Date: 20101125
  Transmission Date: 20110411
  Serious: Yes (Death)
  Sender: FDA-Public Use
  Company Number: JP-SANOFI-AVENTIS-2010SA052031

PATIENT
  Age: 55 Year
  Sex: Male

DRUGS (2)
  1. TAXOTERE [Suspect]
     Indication: OESOPHAGEAL CARCINOMA RECURRENT
     Route: 042
     Dates: start: 20040101
  2. NEDAPLATIN [Suspect]
     Indication: OESOPHAGEAL CARCINOMA RECURRENT
     Dates: start: 20040101

REACTIONS (1)
  - PNEUMONIA [None]
